FAERS Safety Report 23792656 (Version 1)
Quarter: 2024Q2

REPORT INFORMATION
  Report Type: Spontaneous
  Country: US (occurrence: US)
  Receive Date: 20240429
  Receipt Date: 20240429
  Transmission Date: 20240716
  Serious: No
  Sender: FDA-Public Use
  Company Number: US-GSKCCFUS-Case-01991627_AE-110566

PATIENT
  Sex: Female

DRUGS (2)
  1. BENLYSTA [Suspect]
     Active Substance: BELIMUMAB
     Indication: Product used for unknown indication
     Dosage: 400 UG
     Route: 042
     Dates: start: 20240419
  2. BENLYSTA [Suspect]
     Active Substance: BELIMUMAB
     Dosage: 400 UG
     Route: 042

REACTIONS (1)
  - Wrong technique in device usage process [Unknown]
